FAERS Safety Report 8965527 (Version 1)
Quarter: 2012Q4

REPORT INFORMATION
  Report Type: Spontaneous
  Country: US (occurrence: None)
  Receive Date: 20121212
  Receipt Date: 20121212
  Transmission Date: 20130627
  Serious: Yes (Hospitalization)
  Sender: FDA-Public Use
  Company Number: None

PATIENT
  Age: 40 Year
  Sex: Female
  Weight: 108.05 kg

DRUGS (1)
  1. NORDITROPIN FLEXPRO [Suspect]

REACTIONS (3)
  - Urinary tract infection [None]
  - Sepsis [None]
  - Pulmonary toxicity [None]
